FAERS Safety Report 5509760-X (Version None)
Quarter: 2007Q4

REPORT INFORMATION
  Report Type: 
  Country: None (occurrence: None)
  Receive Date: 20071107
  Receipt Date: 20071107
  Transmission Date: 20080405
  Serious: Yes (Hospitalization)
  Sender: FDA-Public Use
  Company Number: None

PATIENT
  Age: 72 Year
  Sex: Male

DRUGS (2)
  1. ASPIRIN [Suspect]
     Indication: CARDIOVASCULAR EVENT PROPHYLAXIS
     Dosage: 81MG EVERY DAY PO
     Route: 048
     Dates: start: 20050916, end: 20070925
  2. IBUPROFEN [Suspect]
     Indication: PAIN
     Dosage: 400MG TID PO
     Route: 048
     Dates: start: 20070917, end: 20070925

REACTIONS (3)
  - ABDOMINAL PAIN [None]
  - GASTRIC HAEMORRHAGE [None]
  - GASTROINTESTINAL HAEMORRHAGE [None]
